FAERS Safety Report 5291496-4 (Version None)
Quarter: 2007Q2

REPORT INFORMATION
  Report Type: 
  Country: None (occurrence: None)
  Receive Date: 20070403
  Receipt Date: 20070323
  Transmission Date: 20071010
  Serious: Yes (Hospitalization)
  Sender: FDA-Public Use
  Company Number: 16056

PATIENT
  Sex: Female

DRUGS (3)
  1. LEUCOVORIN CALCIUM [Suspect]
  2. FLUOROURACIL [Concomitant]
  3. OXALIPLATIN [Concomitant]

REACTIONS (1)
  - PULMONARY FIBROSIS [None]
